FAERS Safety Report 6562942-0 (Version None)
Quarter: 2010Q1

REPORT INFORMATION
  Report Type: 
  Country: None (occurrence: None)
  Receive Date: 20100130
  Receipt Date: 20091125
  Transmission Date: 20100710
  Serious: No
  Sender: FDA-Public Use
  Company Number: US-ABBOTT-09P-163-0611335-00

PATIENT
  Sex: Female
  Weight: 56.75 kg

DRUGS (9)
  1. HUMIRA [Suspect]
     Indication: RHEUMATOID ARTHRITIS
     Route: 058
     Dates: start: 20090201, end: 20090901
  2. PREDNISONE [Concomitant]
     Indication: RHEUMATOID ARTHRITIS
     Dosage: UNKNOWN TAPERING DOSE
     Dates: start: 20090201, end: 20090901
  3. PREDNISONE [Concomitant]
     Dates: start: 20090901
  4. PREDNISONE [Concomitant]
     Dosage: TAPERING DOSE.
     Dates: end: 20090201
  5. ATIVAN [Concomitant]
     Indication: SLEEP DISORDER
  6. ARAVA [Concomitant]
     Indication: RHEUMATOID ARTHRITIS
  7. PLAQUENIL [Concomitant]
     Indication: RHEUMATOID ARTHRITIS
     Dosage: 200MG
  8. AZULFIDINE [Concomitant]
     Indication: RHEUMATOID ARTHRITIS
     Dosage: 500MG X 6 TABLETS DAILY
  9. SOMA [Concomitant]
     Indication: SLEEP DISORDER
     Dosage: AS NEEDED FOR SLEEP EVERY OTHER DAY

REACTIONS (7)
  - DIZZINESS [None]
  - HYPOTHYROIDISM [None]
  - INFLUENZA [None]
  - OROPHARYNGEAL PAIN [None]
  - PAIN [None]
  - RASH [None]
  - RHEUMATOID ARTHRITIS [None]
